FAERS Safety Report 6336430-0 (Version None)
Quarter: 2009Q3

REPORT INFORMATION
  Report Type: 
  Country: None (occurrence: None)
  Receive Date: 20090901
  Receipt Date: 20090825
  Transmission Date: 20100115
  Serious: Yes (Death, Life-Threatening, Hospitalization)
  Sender: FDA-Public Use
  Company Number: US-ROCHE-480920

PATIENT
  Sex: Male
  Weight: 83.5 kg

DRUGS (4)
  1. CAPECITABINE [Suspect]
     Dosage: ADMINISTERED  ON DAYS 1-7 IN A TWO WEEK CYCLE. LAST DOESE RECEIVED 4 JAN 2007
     Route: 048
     Dates: start: 20061228
  2. BEVACIZUMAB [Suspect]
     Dosage: ON DAY ONE OF A TWO WEEK CYCLE.
     Route: 042
     Dates: start: 20061228
  3. OXALIPLATIN [Suspect]
     Dosage: ADMINSTERED ON DAY 1 IN A TWO WEEK CYCLE.
     Route: 042
     Dates: start: 20061228
  4. NORVASC [Concomitant]
     Dates: end: 20070126

REACTIONS (2)
  - ASTHENIA [None]
  - CARDIAC ARREST [None]
